FAERS Safety Report 25438524 (Version 1)
Quarter: 2025Q2

REPORT INFORMATION
  Report Type: Spontaneous
  Country: US (occurrence: US)
  Receive Date: 20250616
  Receipt Date: 20250616
  Transmission Date: 20250717
  Serious: Yes (Life-Threatening, Hospitalization, Other)
  Sender: ROCHE
  Company Number: US-ROCHE-10000310312

PATIENT
  Age: 72 Year
  Sex: Male
  Weight: 73.02 kg

DRUGS (2)
  1. NUTROPIN [Suspect]
     Active Substance: SOMATROPIN
     Indication: Product used for unknown indication
     Dosage: 10 MG/2ML
     Route: 065
     Dates: start: 200710
  2. KEPPRA [Concomitant]
     Active Substance: LEVETIRACETAM
     Indication: Seizure
     Dates: start: 2010

REACTIONS (15)
  - Weight increased [Unknown]
  - Visual impairment [Recovering/Resolving]
  - Volvulus [Recovered/Resolved]
  - Hypotension [Unknown]
  - Parkinson^s disease [Unknown]
  - Seizure [Unknown]
  - Nephrolithiasis [Unknown]
  - Glaucoma [Unknown]
  - Headache [Unknown]
  - Off label use [Unknown]
  - Kaleidoscope vision [Unknown]
  - Chemical burn [Unknown]
  - Fall [Unknown]
  - Cervical vertebral fracture [Unknown]
  - Sepsis [Unknown]

NARRATIVE: CASE EVENT DATE: 20160101
